FAERS Safety Report 13233841 (Version 2)
Quarter: 2017Q2

REPORT INFORMATION
  Report Type: Spontaneous
  Country: US (occurrence: US)
  Receive Date: 20170215
  Receipt Date: 20170425
  Transmission Date: 20170830
  Serious: No
  Sender: FDA-Public Use
  Company Number: US-BRISTOL-MYERS SQUIBB COMPANY-BMS-2017-012116

PATIENT
  Sex: Male

DRUGS (2)
  1. ORENCIA [Suspect]
     Active Substance: ABATACEPT
     Indication: PRODUCT USED FOR UNKNOWN INDICATION
     Dosage: 125 UNK, UNK
     Route: 058
     Dates: start: 20161122
  2. ORENCIA [Suspect]
     Active Substance: ABATACEPT
     Indication: SPONDYLOEPIPHYSEAL DYSPLASIA
     Dosage: 125 MG, QWK
     Route: 058
     Dates: start: 20160516

REACTIONS (3)
  - Product use in unapproved indication [Unknown]
  - Herpes zoster [Unknown]
  - Drug ineffective [Unknown]
